FAERS Safety Report 8024959-9 (Version None)
Quarter: 2011Q4

REPORT INFORMATION
  Report Type: 
  Country: None (occurrence: None)
  Receive Date: 20111130
  Receipt Date: 20101014
  Transmission Date: 20120403
  Serious: Yes (Hospitalization)
  Sender: FDA-Public Use
  Company Number: 303172

PATIENT
  Age: 40 Year
  Sex: Female
  Weight: 66.7 kg

DRUGS (4)
  1. CRESTOR /01588602/ (ROSUVASTAIN CALCIUM) [Concomitant]
  2. COZAAR [Concomitant]
  3. NOVOLOG [Suspect]
     Indication: TYPE 1 DIABETES MELLITUS
     Dosage: SLIDING SCALE, SUBCUTANEOUS
     Route: 058
     Dates: start: 20091001, end: 20091201
  4. LEVEMIR [Suspect]
     Indication: TYPE 1 DIABETES MELLITUS
     Dosage: 27 U, HS, SUBCUTANEOUS
     Route: 058
     Dates: start: 20091001, end: 20091201

REACTIONS (6)
  - VOMITING [None]
  - TREMOR [None]
  - NAUSEA [None]
  - DIARRHOEA [None]
  - DYSPNOEA [None]
  - BLOOD GLUCOSE INCREASED [None]
